FAERS Safety Report 19447790 (Version 2)
Quarter: 2021Q2

REPORT INFORMATION
  Report Type: Spontaneous
  Country: US (occurrence: US)
  Receive Date: 20210622
  Receipt Date: 20210625
  Transmission Date: 20210717
  Serious: Yes (Other)
  Sender: FDA-Public Use
  Company Number: US-CIPLA LTD.-2021US04160

PATIENT

DRUGS (24)
  1. ROPINIROLE. [Concomitant]
     Active Substance: ROPINIROLE
     Dosage: 4 MILLIGRAM, TID
     Route: 065
     Dates: start: 201904, end: 201907
  2. TEMAZEPAM. [Concomitant]
     Active Substance: TEMAZEPAM
     Indication: RESTLESS LEGS SYNDROME
     Dosage: 15 TO 30 MG AS NEEDED
     Route: 065
     Dates: end: 201611
  3. TRAZODONE [Concomitant]
     Active Substance: TRAZODONE HYDROCHLORIDE
     Indication: INSOMNIA
     Dosage: 200 MILLIGRAM, QD
     Route: 065
     Dates: end: 201611
  4. ROPINIROLE. [Concomitant]
     Active Substance: ROPINIROLE
     Indication: RESTLESS LEGS SYNDROME
     Dosage: 0.5 MG DAILY
     Route: 065
     Dates: start: 201707
  5. ROPINIROLE. [Concomitant]
     Active Substance: ROPINIROLE
     Dosage: 6 MILLIGRAM, QD, AT BEDTIME
     Route: 065
     Dates: start: 201707, end: 201805
  6. OLANZAPINE. [Suspect]
     Active Substance: OLANZAPINE
     Indication: BIPOLAR I DISORDER
     Dosage: UNK
     Route: 065
     Dates: start: 201612, end: 201701
  7. ROPINIROLE. [Concomitant]
     Active Substance: ROPINIROLE
     Dosage: INCREASED TO 4 MILLIGRAM, BID
     Route: 065
     Dates: start: 201806, end: 201903
  8. CARBIDOPA AND LEVODOPA [Concomitant]
     Active Substance: CARBIDOPA\LEVODOPA
     Dosage: 2 DOSAGE FORM, TID
     Route: 065
     Dates: start: 201904, end: 202009
  9. TEMAZEPAM. [Concomitant]
     Active Substance: TEMAZEPAM
     Indication: INSOMNIA
  10. FLUOXETINE [Concomitant]
     Active Substance: FLUOXETINE HYDROCHLORIDE
     Indication: BIPOLAR I DISORDER
     Dosage: 40 MG DAILY
     Route: 065
     Dates: end: 201612
  11. QUETIAPINE. [Suspect]
     Active Substance: QUETIAPINE
     Indication: BIPOLAR I DISORDER
     Dosage: UNK
     Route: 065
     Dates: start: 201612, end: 201701
  12. ROPINIROLE. [Concomitant]
     Active Substance: ROPINIROLE
     Dosage: 6 MILLIGRAM, TID
     Route: 065
     Dates: start: 201908, end: 201912
  13. GABAPENTIN. [Suspect]
     Active Substance: GABAPENTIN
     Indication: RESTLESS LEGS SYNDROME
     Dosage: 800 MG IN THE MORNING, AND 3200 MG AT BEDTIME, BID
     Route: 065
  14. CODEINE [Concomitant]
     Active Substance: CODEINE
     Indication: RESTLESS LEGS SYNDROME
     Dosage: 30 MILLIGRAM, QD
     Route: 065
     Dates: start: 201703, end: 201803
  15. DIVALPROEX [Concomitant]
     Active Substance: DIVALPROEX SODIUM
     Indication: BIPOLAR I DISORDER
     Dosage: 1500 MILLIGRAM, QD, AT BEDTIME
     Route: 065
     Dates: start: 201701, end: 201802
  16. PRAMIPEXOLE. [Concomitant]
     Active Substance: PRAMIPEXOLE
     Indication: RESTLESS LEGS SYNDROME
     Dosage: 0.375 MG DAILY
     Route: 065
     Dates: end: 201707
  17. CARBIDOPA AND LEVODOPA [Concomitant]
     Active Substance: CARBIDOPA\LEVODOPA
     Dosage: 1 DOSAGE FORM, QID
     Route: 065
     Dates: start: 201806, end: 201903
  18. GABAPENTIN. [Suspect]
     Active Substance: GABAPENTIN
     Dosage: 800 MG IN THE MORNING, AND 1600 MG AT BEDTIME, BID
     Route: 065
     Dates: start: 201611, end: 201808
  19. ROPINIROLE. [Concomitant]
     Active Substance: ROPINIROLE
     Dosage: INCREASED TO 8 MILLIGRAM, TID
     Route: 065
     Dates: start: 202001
  20. CARBIDOPA AND LEVODOPA [Concomitant]
     Active Substance: CARBIDOPA\LEVODOPA
     Indication: RESTLESS LEGS SYNDROME
     Dosage: 1 DOSAGE FORM, BID
     Route: 065
     Dates: start: 201803, end: 201805
  21. LAMOTRIGINE. [Concomitant]
     Active Substance: LAMOTRIGINE
     Indication: BIPOLAR I DISORDER
     Dosage: 150 MG DAILY AT BEDTIME
     Route: 065
     Dates: start: 201701
  22. LAMOTRIGINE. [Concomitant]
     Active Substance: LAMOTRIGINE
     Dosage: 100 MILLIGRAM, BID
     Route: 065
     Dates: end: 201802
  23. LAMOTRIGINE. [Concomitant]
     Active Substance: LAMOTRIGINE
     Dosage: 100 MG AM, 200 MG PM, BID
     Route: 065
     Dates: start: 201803
  24. DIVALPROEX [Concomitant]
     Active Substance: DIVALPROEX SODIUM
     Dosage: 1000 MILLIGRAM, QD, AT BEDTIME
     Route: 065
     Dates: start: 201803

REACTIONS (5)
  - Drug ineffective [Unknown]
  - Oedema peripheral [Unknown]
  - Condition aggravated [Recovering/Resolving]
  - Restless legs syndrome [Recovering/Resolving]
  - Intentional product misuse [Unknown]

NARRATIVE: CASE EVENT DATE: 201612
